FAERS Safety Report 6191191-3 (Version None)
Quarter: 2009Q2

REPORT INFORMATION
  Report Type: 
  Country: None (occurrence: None)
  Receive Date: 20090515
  Receipt Date: 20090504
  Transmission Date: 20091009
  Serious: Yes (Hospitalization)
  Sender: FDA-Public Use
  Company Number: NL-JNJFOC-20030905648

PATIENT
  Sex: Female
  Weight: 99 kg

DRUGS (11)
  1. REMICADE [Suspect]
     Indication: RHEUMATOID ARTHRITIS
     Route: 042
  2. LEDERTREXATE [Concomitant]
     Indication: RHEUMATOID ARTHRITIS
     Dosage: STOPPED DURING HOSPITALISATION FROM 07-AUG-2003 TO 14-AUG-2003
  3. FOLIC ACID [Concomitant]
  4. APROVEL [Concomitant]
     Indication: HYPERTENSION
  5. EUTHYROX [Concomitant]
     Indication: CONGENITAL HYPOTHYROIDISM
  6. TRAMADOL HYDROCHLORIDE [Concomitant]
  7. PYRIDOXIN [Concomitant]
     Indication: TUBERCULOSIS
  8. PYRAZINAMIDE [Concomitant]
     Indication: TUBERCULOSIS
  9. RIFADIN [Concomitant]
     Indication: TUBERCULOSIS
  10. ISONIAZID [Concomitant]
     Indication: TUBERCULOSIS
  11. ETHAMBUTOL HCL [Concomitant]
     Indication: TUBERCULOSIS

REACTIONS (5)
  - DISSEMINATED TUBERCULOSIS [None]
  - NIGHT SWEATS [None]
  - PLEURAL EFFUSION [None]
  - PYREXIA [None]
  - WEIGHT DECREASED [None]
